FAERS Safety Report 15741679 (Version 1)
Quarter: 2018Q4

REPORT INFORMATION
  Report Type: Spontaneous
  Country: US (occurrence: US)
  Receive Date: 20181219
  Receipt Date: 20181219
  Transmission Date: 20190205
  Serious: No
  Sender: FDA-Public Use
  Company Number: US-IMPAX LABORATORIES, LLC-2018-IPXL-01885

PATIENT
  Age: 30 Year
  Sex: Female

DRUGS (1)
  1. COLESTIPOL HYDROCHLORIDE. [Suspect]
     Active Substance: COLESTIPOL HYDROCHLORIDE
     Indication: PRODUCT USED FOR UNKNOWN INDICATION
     Dosage: 1 G, QD
     Route: 048
     Dates: start: 20170815

REACTIONS (5)
  - Product use complaint [Unknown]
  - Product physical issue [Unknown]
  - Product packaging issue [Unknown]
  - Product storage error [Unknown]
  - Poor quality product administered [Unknown]
